FAERS Safety Report 5169214-X (Version None)
Quarter: 2006Q4

REPORT INFORMATION
  Report Type: 
  Country: None (occurrence: None)
  Receive Date: 20061201
  Receipt Date: 20061121
  Transmission Date: 20070319
  Serious: Yes (Other)
  Sender: FDA-Public Use
  Company Number: 2006144500

PATIENT
  Age: 50 Year
  Sex: Female

DRUGS (3)
  1. LYRICA [Suspect]
     Dosage: 300 MG (150 MG, 2 IN 1 D)
     Dates: start: 20060810
  2. NSAID'S (NSAID'S) [Concomitant]
  3. ALL OTHER THERAPEUTIC PRODUCTS (ALL OTHER THERAPEUTIC PRODUCTS) [Concomitant]

REACTIONS (2)
  - DEPRESSION [None]
  - DRUG INEFFECTIVE [None]
